FAERS Safety Report 6609692-X (Version None)
Quarter: 2010Q1

REPORT INFORMATION
  Report Type: 
  Country: None (occurrence: None)
  Receive Date: 20100302
  Receipt Date: 20100224
  Transmission Date: 20100710
  Serious: Yes (Hospitalization)
  Sender: FDA-Public Use
  Company Number: JP-SANOFI-AVENTIS-2010SA006228

PATIENT
  Age: 29 Year
  Sex: Female
  Weight: 69.4 kg

DRUGS (2)
  1. APIDRA [Suspect]
     Dosage: THE DOSE OF ONCE' 16-20 UNITS; TID
     Route: 058
     Dates: start: 20090814
  2. LANTUS [Suspect]
     Route: 058
     Dates: start: 20040820

REACTIONS (1)
  - POLYNEUROPATHY [None]
